FAERS Safety Report 5476373-8 (Version None)
Quarter: 2007Q4

REPORT INFORMATION
  Report Type: 
  Country: None (occurrence: None)
  Receive Date: 20071003
  Receipt Date: 20070921
  Transmission Date: 20080405
  Serious: Yes (Other)
  Sender: FDA-Public Use
  Company Number: US-PFIZER INC-2007079291

PATIENT
  Sex: Female
  Weight: 50 kg

DRUGS (3)
  1. LYRICA [Suspect]
     Dosage: TEXT:100 MG
     Dates: start: 20070812, end: 20070910
  2. ASPIRIN [Concomitant]
  3. THYROID TAB [Concomitant]

REACTIONS (6)
  - HYPERTENSION [None]
  - HYPOTONIA [None]
  - MUSCULAR WEAKNESS [None]
  - OEDEMA [None]
  - SKIN ATROPHY [None]
  - WEIGHT INCREASED [None]
